FAERS Safety Report 9392621 (Version 1)
Quarter: 2013Q3

REPORT INFORMATION
  Report Type: Spontaneous
  Country: US (occurrence: None)
  Receive Date: 20130708
  Receipt Date: 20130708
  Transmission Date: 20140515
  Serious: Yes (Hospitalization)
  Sender: FDA-Public Use
  Company Number: None

PATIENT
  Age: 82 Year
  Sex: Female
  Weight: 78 kg

DRUGS (10)
  1. RIVAROXABAN [Suspect]
     Indication: ATRIAL FIBRILLATION
     Route: 048
     Dates: start: 20130101, end: 20130705
  2. ASPIRIN [Concomitant]
  3. TRAMADOL [Concomitant]
  4. PANTOPRAZOLE [Concomitant]
  5. OMEPRAZOLE [Concomitant]
  6. FUROSEMIDE [Concomitant]
  7. SPIRONOLACTONE [Concomitant]
  8. ATORVASTATIN [Concomitant]
  9. B12 [Concomitant]
  10. CARVEDILOL [Concomitant]

REACTIONS (3)
  - Fatigue [None]
  - Anaemia [None]
  - Gastric ulcer [None]
